FAERS Safety Report 13017009 (Version 1)
Quarter: 2016Q4

REPORT INFORMATION
  Report Type: Spontaneous
  Country: US (occurrence: US)
  Receive Date: 20161211
  Receipt Date: 20161211
  Transmission Date: 20170207
  Serious: Yes (Disabling)
  Sender: FDA-Public Use
  Company Number: None

PATIENT
  Age: 57 Year
  Sex: Female
  Weight: 108 kg

DRUGS (5)
  1. PEPSID [Concomitant]
  2. DAILY VITAMIN [Concomitant]
     Active Substance: VITAMINS
  3. NEURONTIN [Concomitant]
     Active Substance: GABAPENTIN
  4. COQ10 [Concomitant]
     Active Substance: UBIDECARENONE
  5. ATORVASTATIN 20 MG TABLET APO [Suspect]
     Active Substance: ATORVASTATIN
     Indication: BLOOD CHOLESTEROL
     Dosage: ?          QUANTITY:100 TABLET(S);?
     Route: 048

REACTIONS (2)
  - Chromaturia [None]
  - Liver function test abnormal [None]

NARRATIVE: CASE EVENT DATE: 20161204
